FAERS Safety Report 4744443-5 (Version None)
Quarter: 2005Q3

REPORT INFORMATION
  Report Type: 
  Country: None (occurrence: None)
  Receive Date: 20050811
  Receipt Date: 20050811
  Transmission Date: 20060218
  Serious: Yes (Hospitalization)
  Sender: FDA-Public Use
  Company Number: None

PATIENT
  Age: 55 Year
  Sex: Female
  Weight: 77.5651 kg

DRUGS (3)
  1. TAXOL [Suspect]
     Indication: MALIGNANT PERITONEAL NEOPLASM
     Dosage: 175 MG /M2 IV Q 3 WEEKS
     Route: 042
     Dates: start: 20050518
  2. TAXOL [Suspect]
     Indication: MALIGNANT PERITONEAL NEOPLASM
     Dosage: 175 MG /M2 IV Q 3 WEEKS
     Route: 042
     Dates: start: 20050608
  3. TAXOL [Suspect]
     Indication: MALIGNANT PERITONEAL NEOPLASM
     Dosage: 175 MG /M2 IV Q 3 WEEKS
     Route: 042
     Dates: start: 20050629

REACTIONS (4)
  - ABDOMINAL DISTENSION [None]
  - MALIGNANT NEOPLASM PROGRESSION [None]
  - SMALL INTESTINAL OBSTRUCTION [None]
  - VOMITING [None]
